FAERS Safety Report 7251402-X (Version None)
Quarter: 2011Q1

REPORT INFORMATION
  Report Type: 
  Country: None (occurrence: None)
  Receive Date: 20110128
  Receipt Date: 20110114
  Transmission Date: 20110831
  Serious: Yes (Hospitalization)
  Sender: FDA-Public Use
  Company Number: US-ELI_LILLY_AND_COMPANY-US200910004620

PATIENT
  Sex: Female

DRUGS (16)
  1. FORTEO [Suspect]
     Indication: OSTEOPOROSIS
     Dosage: 20 UG, DAILY (1/D)
     Dates: start: 20090925
  2. TYLENOL (CAPLET) [Concomitant]
  3. PREDNISONE [Concomitant]
     Indication: WEIGHT INCREASED
     Dosage: 10 MG, UNKNOWN
  4. METHOTREXATE [Concomitant]
     Dosage: UNK, UNKNOWN
     Route: 065
  5. COMBIVENT [Concomitant]
     Dosage: UNK, UNKNOWN
     Route: 065
  6. COREG [Concomitant]
     Dosage: 1 MG, DAILY (1/D)
  7. ZOCOR [Concomitant]
  8. ATIVAN [Concomitant]
     Dosage: UNK, 2/D
  9. FORTEO [Suspect]
     Dosage: 20 UG, DAILY (1/D)
  10. FORTEO [Suspect]
     Dosage: 20 UG, DAILY (1/D)
     Dates: start: 20090101, end: 20091201
  11. CYTOTEC [Concomitant]
  12. VITAMIN D [Concomitant]
  13. ASPIRIN [Concomitant]
     Dosage: UNK, DAILY (1/D)
  14. LASIX [Concomitant]
  15. PROCARDIA [Concomitant]
  16. CELEBREX [Concomitant]

REACTIONS (8)
  - PNEUMONIA [None]
  - NAUSEA [None]
  - CONSTIPATION [None]
  - MALAISE [None]
  - COMPUTERISED TOMOGRAM ABNORMAL [None]
  - INTESTINAL OBSTRUCTION [None]
  - PAIN IN EXTREMITY [None]
  - ASTHENIA [None]
